FAERS Safety Report 8619035-8 (Version None)
Quarter: 2012Q3

REPORT INFORMATION
  Report Type: 
  Country: None (occurrence: None)
  Receive Date: 20120824
  Receipt Date: 20120821
  Transmission Date: 20120928
  Serious: Yes (Hospitalization, Other)
  Sender: FDA-Public Use
  Company Number: GB-BAYER-2012-085962

PATIENT
  Age: 35 Year
  Sex: Male

DRUGS (1)
  1. CIPROFLOXACIN [Suspect]
     Indication: URINARY TRACT INFECTION
     Dosage: 500 MG, UNK
     Dates: start: 20120804, end: 20120806

REACTIONS (10)
  - HEART RATE INCREASED [None]
  - ARTHRITIS [None]
  - PAIN [None]
  - ANAPHYLACTIC REACTION [None]
  - MUSCULAR WEAKNESS [None]
  - IMMOBILE [None]
  - SENSORY LOSS [None]
  - HYPOAESTHESIA [None]
  - SENSATION OF HEAVINESS [None]
  - JOINT CREPITATION [None]
